FAERS Safety Report 8117335-1 (Version None)
Quarter: 2012Q1

REPORT INFORMATION
  Report Type: 
  Country: None (occurrence: None)
  Receive Date: 20120206
  Receipt Date: 20110614
  Transmission Date: 20120608
  Serious: No
  Sender: FDA-Public Use
  Company Number: PHHY2010US76424

PATIENT
  Sex: Male

DRUGS (11)
  1. HYDROXYUREA [Concomitant]
  2. LASIX [Concomitant]
  3. DORZOLAMIDE [Concomitant]
  4. MOTRIN [Concomitant]
  5. TRAVASOL 10% [Concomitant]
  6. AMLODIPINE [Concomitant]
  7. TRAMADOL HCL [Concomitant]
  8. KLOR-CON [Concomitant]
  9. ZOCOR [Concomitant]
  10. TASIGNA [Suspect]
     Indication: CHRONIC MYELOID LEUKAEMIA
     Dosage: 300 MG,(150 X 2) BID
     Route: 048
     Dates: start: 20100922
  11. ALLOPURINOL [Concomitant]

REACTIONS (3)
  - CONSTIPATION [None]
  - RASH [None]
  - EYE PRURITUS [None]
